FAERS Safety Report 8987135 (Version 3)
Quarter: 2013Q1

REPORT INFORMATION
  Report Type: Spontaneous
  Country: US (occurrence: US)
  Receive Date: 20121226
  Receipt Date: 20130109
  Transmission Date: 20140127
  Serious: Yes (Hospitalization, Other)
  Sender: FDA-Public Use
  Company Number: US-BAXTER-2012BAX028532

PATIENT
  Age: 71 Year
  Sex: Female

DRUGS (2)
  1. DIANEAL LOW CALCIUM [Suspect]
     Indication: PERITONEAL DIALYSIS
     Route: 033
     Dates: end: 20121224
  2. DIANEAL LOW CALCIUM [Suspect]
     Route: 033

REACTIONS (4)
  - Pneumonia [Recovering/Resolving]
  - Hypotension [Recovered/Resolved]
  - Decreased appetite [Unknown]
  - Hypovolaemia [Unknown]
